FAERS Safety Report 9159227 (Version 1)
Quarter: 2013Q1

REPORT INFORMATION
  Report Type: Spontaneous
  Country: FR (occurrence: None)
  Receive Date: 20130213
  Receipt Date: 20130213
  Transmission Date: 20140127
  Serious: Yes (Hospitalization)
  Sender: FDA-Public Use
  Company Number: DSM-2013-00177

PATIENT
  Age: 59 Year
  Sex: Male

DRUGS (8)
  1. COOLMETEC [Suspect]
     Indication: HYPERTENSION
     Dosage: 80/50 MG (2 IN 1 D), ORAL
     Route: 048
     Dates: start: 201108, end: 20120509
  2. COOLMETEC [Suspect]
     Dosage: 80/50 MG (2 IN 1 D), ORAL
     Route: 048
     Dates: start: 201108, end: 20120509
  3. COOLMETEC [Suspect]
     Dosage: 80/50 MG (2 IN 1 D), ORAL
     Route: 048
     Dates: start: 201108, end: 20120509
  4. COOLMETEC [Suspect]
     Dosage: 80/50 MG (2 IN 1 D), ORAL
     Route: 048
     Dates: start: 201108, end: 20120509
  5. VELMETIA [Suspect]
     Indication: TYPE 2 DIABETES MELLITUS
     Dosage: 50/1000 MG (2 IN 1 D), ORAL
     Route: 048
     Dates: start: 20120305, end: 20120427
  6. VELMETIA [Suspect]
     Dosage: 50/1000 MG (2 IN 1 D), ORAL
     Route: 048
     Dates: start: 20120305, end: 20120427
  7. GLUCOPHAGE [Suspect]
     Indication: PRODUCT USED FOR UNKNOWN INDICATION
     Dosage: 1000 MG (1000 MG, 1 IN 1 D), ORAL
     Route: 048
     Dates: end: 20120509
  8. FRACTAL [Suspect]
     Indication: PRODUCT USED FOR UNKNOWN INDICATION
     Dosage: A LONG TIME AGO
     Route: 048
     Dates: end: 20120509

REACTIONS (5)
  - Drug reaction with eosinophilia and systemic symptoms [None]
  - Rash maculo-papular [None]
  - Renal failure acute [None]
  - Face oedema [None]
  - Eosinophilia [None]
